FAERS Safety Report 11078035 (Version 1)
Quarter: 2015Q2

REPORT INFORMATION
  Report Type: Spontaneous
  Country: US (occurrence: US)
  Receive Date: 20150430
  Receipt Date: 20150430
  Transmission Date: 20150821
  Serious: No
  Sender: FDA-Public Use
  Company Number: US-009507513-1504USA023097

PATIENT
  Age: 56 Year
  Sex: Male

DRUGS (1)
  1. GRASTEK [Suspect]
     Active Substance: PHLEUM PRATENSE POLLEN
     Indication: RHINITIS ALLERGIC
     Dosage: UNK
     Route: 060
     Dates: start: 201501

REACTIONS (1)
  - Oral pruritus [Recovered/Resolved with Sequelae]

NARRATIVE: CASE EVENT DATE: 2015
